FAERS Safety Report 16685321 (Version 2)
Quarter: 2019Q3

REPORT INFORMATION
  Report Type: Spontaneous
  Country: US (occurrence: US)
  Receive Date: 20190808
  Receipt Date: 20190812
  Transmission Date: 20191004
  Serious: No
  Sender: FDA-Public Use
  Company Number: US-GLAXOSMITHKLINE-US2019141357

PATIENT
  Age: 69 Year
  Sex: Female

DRUGS (1)
  1. BREO ELLIPTA [Suspect]
     Active Substance: FLUTICASONE FUROATE\VILANTEROL TRIFENATATE
     Indication: PLEURAL EFFUSION
     Dosage: UNK UNK, 1D
     Route: 065
     Dates: start: 20190731

REACTIONS (5)
  - Product use in unapproved indication [Unknown]
  - Cough [Unknown]
  - Throat irritation [Unknown]
  - Nasal congestion [Unknown]
  - Drug ineffective for unapproved indication [Unknown]

NARRATIVE: CASE EVENT DATE: 2019
